APPROVED DRUG PRODUCT: BELIX
Active Ingredient: DIPHENHYDRAMINE HYDROCHLORIDE
Strength: 12.5MG/5ML
Dosage Form/Route: ELIXIR;ORAL
Application: A086586 | Product #001
Applicant: HALSEY DRUG CO INC
Approved: Oct 3, 1983 | RLD: No | RS: No | Type: DISCN